FAERS Safety Report 5063123-2 (Version None)
Quarter: 2006Q3

REPORT INFORMATION
  Report Type: 
  Country: None (occurrence: None)
  Receive Date: 20060727
  Receipt Date: 20060502
  Transmission Date: 20061208
  Serious: Yes (Hospitalization)
  Sender: FDA-Public Use
  Company Number: 2006UW08578

PATIENT
  Age: 82 Year
  Sex: Male
  Weight: 95.5 kg

DRUGS (11)
  1. CRESTOR [Suspect]
     Route: 048
     Dates: start: 20050718, end: 20060426
  2. GABAPENTIN [Concomitant]
  3. ASPIRIN [Concomitant]
  4. PLETAL [Concomitant]
  5. TOPROL-XL [Concomitant]
  6. AVAPRO [Concomitant]
  7. COUMADIN [Concomitant]
  8. ALLOPURIN0L [Concomitant]
  9. LASIX [Concomitant]
  10. QUININE SULFATE [Concomitant]
  11. NABUMETONE [Concomitant]

REACTIONS (3)
  - ABASIA [None]
  - ASTHENIA [None]
  - RHABDOMYOLYSIS [None]
